FAERS Safety Report 5872229-7 (Version None)
Quarter: 2008Q3

REPORT INFORMATION
  Report Type: 
  Country: None (occurrence: None)
  Receive Date: 20080905
  Receipt Date: 20080714
  Transmission Date: 20090109
  Serious: Yes (Other)
  Sender: FDA-Public Use
  Company Number: US-PURDUE-USA_2008_0034497

PATIENT
  Sex: Female

DRUGS (1)
  1. OXYCONTIN [Suspect]
     Indication: HEADACHE
     Dosage: 80 MG, QID
     Route: 048
     Dates: start: 19990101, end: 20050101

REACTIONS (13)
  - AGGRESSION [None]
  - AGITATION [None]
  - AMNESIA [None]
  - ANGER [None]
  - FEELING ABNORMAL [None]
  - FEELINGS OF WORTHLESSNESS [None]
  - HALLUCINATION [None]
  - MALAISE [None]
  - MENTAL STATUS CHANGES [None]
  - SOMNOLENCE [None]
  - STUPOR [None]
  - SUICIDAL IDEATION [None]
  - THINKING ABNORMAL [None]
